FAERS Safety Report 8285907-X (Version None)
Quarter: 2012Q2

REPORT INFORMATION
  Report Type: 
  Country: None (occurrence: None)
  Receive Date: 20120414
  Receipt Date: 20120404
  Transmission Date: 20120825
  Serious: Yes (Other)
  Sender: FDA-Public Use
  Company Number: JP-VERTEX PHARMACEUTICALS INC.-AE-2012-004975

PATIENT
  Age: 55 Year
  Sex: Male

DRUGS (10)
  1. CONFATANIN [Concomitant]
  2. CLOBETASOL PROPIONATE [Concomitant]
  3. HIRUDOID [Concomitant]
  4. LANIRAPID [Concomitant]
  5. KERATINAMIN [Concomitant]
  6. PEGINTERFERON ALFA-2B [Concomitant]
     Indication: HEPATITIS C
     Route: 058
     Dates: start: 20120217
  7. MIRABEGRON [Concomitant]
  8. RIBAVIRIN [Concomitant]
     Indication: HEPATITIS C
     Route: 048
     Dates: start: 20120217
  9. TELAVIC (TELAPREVIR) [Suspect]
     Indication: HEPATITIS C
     Route: 048
     Dates: start: 20120217
  10. RHYTHMY [Concomitant]

REACTIONS (1)
  - LOSS OF CONSCIOUSNESS [None]
